FAERS Safety Report 7833373-8 (Version None)
Quarter: 2011Q4

REPORT INFORMATION
  Report Type: 
  Country: None (occurrence: None)
  Receive Date: 20111024
  Receipt Date: 20111018
  Transmission Date: 20120403
  Serious: Yes (Other)
  Sender: FDA-Public Use
  Company Number: US-PFIZER INC-2011250539

PATIENT
  Sex: Female

DRUGS (1)
  1. XALKORI [Suspect]
     Indication: LUNG NEOPLASM MALIGNANT
     Dosage: 250 MG, UNK
     Dates: start: 20111014

REACTIONS (6)
  - FATIGUE [None]
  - PHOTOPHOBIA [None]
  - VITREOUS FLOATERS [None]
  - NAUSEA [None]
  - DIPLOPIA [None]
  - DYSPEPSIA [None]
